FAERS Safety Report 14790380 (Version 4)
Quarter: 2018Q2

REPORT INFORMATION
  Report Type: Spontaneous
  Country: BG (occurrence: BG)
  Receive Date: 20180423
  Receipt Date: 20180529
  Transmission Date: 20180711
  Serious: Yes (Hospitalization, Other)
  Sender: FDA-Public Use
  Company Number: IND-BG-009507513-1802BGR003232

PATIENT
  Age: 63 Year
  Sex: Female
  Weight: 55 kg

DRUGS (5)
  1. ETORICOXIB [Suspect]
     Active Substance: ETORICOXIB
     Indication: ARTHRALGIA
  2. ETORICOXIB [Suspect]
     Active Substance: ETORICOXIB
     Indication: ARTHRALGIA
  3. ETORICOXIB [Suspect]
     Active Substance: ETORICOXIB
     Indication: BONE PAIN
     Dosage: 120 MG, QD
     Route: 048
     Dates: start: 201706, end: 201708
  4. IBUPROFEN. [Suspect]
     Active Substance: IBUPROFEN
     Indication: BONE PAIN
     Dosage: 200 MG - 400MG
     Route: 048
     Dates: start: 201706, end: 201708
  5. IBUPROFEN. [Suspect]
     Active Substance: IBUPROFEN
     Indication: ARTHRALGIA

REACTIONS (8)
  - Nephropathy [Recovered/Resolved]
  - Acute kidney injury [Recovered/Resolved]
  - Anaemia [Unknown]
  - Nephropathy toxic [Recovered/Resolved]
  - Arthralgia [Unknown]
  - Blood urea increased [Recovered/Resolved]
  - Incorrect drug administration duration [Unknown]
  - Bone pain [Unknown]

NARRATIVE: CASE EVENT DATE: 20170501
